FAERS Safety Report 7831548-5 (Version None)
Quarter: 2011Q4

REPORT INFORMATION
  Report Type: 
  Country: None (occurrence: None)
  Receive Date: 20111021
  Receipt Date: 20111007
  Transmission Date: 20120403
  Serious: Yes (Other)
  Sender: FDA-Public Use
  Company Number: CHPA2011US14469

PATIENT
  Sex: Female

DRUGS (2)
  1. VOLTAREN [Suspect]
     Dosage: UNK, UNK
     Route: 061
  2. ADVAIR DISKUS 100/50 [Concomitant]

REACTIONS (1)
  - MULTIPLE SCLEROSIS [None]
